APPROVED DRUG PRODUCT: PRIMIDONE
Active Ingredient: PRIMIDONE
Strength: 50MG
Dosage Form/Route: TABLET;ORAL
Application: A040667 | Product #001
Applicant: HIKMA INTERNATIONAL PHARMACEUTICALS LLC
Approved: Jul 27, 2006 | RLD: No | RS: No | Type: DISCN